FAERS Safety Report 5888696-9 (Version None)
Quarter: 2008Q3

REPORT INFORMATION
  Report Type: 
  Country: None (occurrence: None)
  Receive Date: 20080917
  Receipt Date: 20080707
  Transmission Date: 20090109
  Serious: Yes (Death)
  Sender: FDA-Public Use
  Company Number: 001085

PATIENT
  Age: 7 Year
  Sex: Male

DRUGS (7)
  1. BUSULFEX (BUSULFAN) INJECTION; REGIMEN [Suspect]
     Indication: STEM CELL TRANSPLANT
     Dosage: 75 MG 100 MG, DAILY DOSE 25 MG, DAILY DOSE; INTRAVENOUS
     Route: 042
     Dates: start: 20080219, end: 20080219
  2. BUSULFEX (BUSULFAN) INJECTION; REGIMEN [Suspect]
     Indication: STEM CELL TRANSPLANT
     Dosage: 75 MG 100 MG, DAILY DOSE 25 MG, DAILY DOSE; INTRAVENOUS
     Route: 042
     Dates: start: 20080220, end: 20080222
  3. BUSULFEX (BUSULFAN) INJECTION; REGIMEN [Suspect]
     Indication: STEM CELL TRANSPLANT
     Dosage: 75 MG 100 MG, DAILY DOSE 25 MG, DAILY DOSE; INTRAVENOUS
     Route: 042
     Dates: start: 20080223, end: 20080223
  4. CYCLOPHOSPHAMIDE [Concomitant]
  5. VALPROATE SODIUM [Concomitant]
  6. FILGRASTIM (FILGRASTIM) [Concomitant]
  7. TACROLIMUS [Concomitant]

REACTIONS (4)
  - DIARRHOEA [None]
  - INTERSTITIAL LUNG DISEASE [None]
  - STOMATITIS [None]
  - VENOOCCLUSIVE LIVER DISEASE [None]
